FAERS Safety Report 23881135 (Version 1)
Quarter: 2024Q2

REPORT INFORMATION
  Report Type: Spontaneous
  Country: AU (occurrence: AU)
  Receive Date: 20240521
  Receipt Date: 20240521
  Transmission Date: 20240715
  Serious: Yes (Hospitalization)
  Sender: FDA-Public Use
  Company Number: AU-SUN PHARMACEUTICAL INDUSTRIES LTD-2024R1-446929

PATIENT
  Age: 62 Year
  Sex: Male

DRUGS (3)
  1. GEMCITABINE [Suspect]
     Active Substance: GEMCITABINE
     Indication: Product used for unknown indication
     Dosage: 1800 MILLIGRAM
     Route: 042
     Dates: start: 20230921, end: 20240104
  2. ABRAXANE [Suspect]
     Active Substance: PACLITAXEL
     Indication: Product used for unknown indication
     Dosage: 220 MILLIGRAM
     Route: 042
     Dates: start: 20230921, end: 20240104
  3. IRGD [Suspect]
     Active Substance: IRGD
     Indication: Product used for unknown indication
     Dosage: 210 MILLIGRAM
     Route: 042
     Dates: start: 20230921, end: 20240104

REACTIONS (1)
  - Oedema peripheral [Unknown]
